FAERS Safety Report 15676870 (Version 8)
Quarter: 2019Q2

REPORT INFORMATION
  Report Type: Spontaneous
  Country: US (occurrence: US)
  Receive Date: 20181130
  Receipt Date: 20190621
  Transmission Date: 20190711
  Serious: Yes (Disabling, Other)
  Sender: FDA-Public Use
  Company Number: US-PFIZER INC-2018483694

PATIENT
  Age: 52 Year
  Sex: Female
  Weight: 68 kg

DRUGS (3)
  1. VFEND [Suspect]
     Active Substance: VORICONAZOLE
     Indication: FUNGAL INFECTION
     Dosage: 200 MG, 2X/DAY
     Route: 048
  2. VFEND [Suspect]
     Active Substance: VORICONAZOLE
     Dosage: 20 MG, 2X/DAY
     Dates: start: 2015
  3. VFEND [Suspect]
     Active Substance: VORICONAZOLE
     Dosage: 200 MG, 2X/DAY
     Route: 048

REACTIONS (14)
  - Malaise [Not Recovered/Not Resolved]
  - Fungal infection [Unknown]
  - Asthenia [Unknown]
  - Cerebral fungal infection [Unknown]
  - Gastrointestinal perforation [Unknown]
  - Gastrointestinal fungal infection [Unknown]
  - Dyskinesia [Unknown]
  - Migraine [Unknown]
  - Melanocytic naevus [Unknown]
  - Memory impairment [Unknown]
  - Panic attack [Unknown]
  - Feeling abnormal [Unknown]
  - Multiple sclerosis [Unknown]
  - Intentional product use issue [Unknown]
